FAERS Safety Report 9323706 (Version 2)
Quarter: 2013Q2

REPORT INFORMATION
  Report Type: Report from Study
  Country: US (occurrence: US)
  Receive Date: 20130603
  Receipt Date: 20130614
  Transmission Date: 20140414
  Serious: Yes (Other)
  Sender: FDA-Public Use
  Company Number: US-SHIRE-ALL1-2013-03472

PATIENT
  Age: 49 Year
  Sex: Female
  Weight: 63.04 kg

DRUGS (15)
  1. BLINDED 489 (LISDEXAMFETAMINE DIMESYLATE) [Suspect]
     Indication: MAJOR DEPRESSION
     Dosage: UNK UNK, 1X/DAY:QD
     Route: 048
     Dates: start: 20130419, end: 20130517
  2. BLINDED DULOXETINE HYDROCHLORIDE [Suspect]
     Indication: MAJOR DEPRESSION
     Dosage: UNK UNK, 1X/DAY:QD
     Route: 048
     Dates: start: 20130419, end: 20130517
  3. BLINDED ESCITALOPRAM OXALATE [Suspect]
     Indication: MAJOR DEPRESSION
     Dosage: UNK UNK, 1X/DAY:QD
     Route: 048
     Dates: start: 20130419, end: 20130517
  4. BLINDED PLACEBO [Suspect]
     Indication: MAJOR DEPRESSION
     Dosage: UNK UNK, 1X/DAY:QD
     Route: 048
     Dates: start: 20130419, end: 20130517
  5. BLINDED SERTRALINE HYDROCHLORIDE [Suspect]
     Indication: MAJOR DEPRESSION
     Dosage: UNK UNK, 1X/DAY:QD
     Route: 048
     Dates: start: 20130419, end: 20130517
  6. BLINDED VENLAFAXINE HYDROCHLORIDE [Suspect]
     Indication: MAJOR DEPRESSION
     Dosage: UNK UNK, 1X/DAY:QD
     Route: 048
     Dates: start: 20130419, end: 20130517
  7. DULOXETINE HYDROCHLORIDE [Suspect]
     Indication: MAJOR DEPRESSION
     Dosage: 30 MG, UNKNOWN
     Route: 065
     Dates: start: 20130419, end: 20130425
  8. DULOXETINE HYDROCHLORIDE [Suspect]
     Dosage: 60 MG, UNKNOWN
     Route: 065
     Dates: start: 20130426, end: 20130517
  9. MULTIVITAMIN                       /07504101/ [Concomitant]
     Indication: ROUTINE HEALTH MAINTENANCE
     Dosage: UNK UNK, UNKNOWN
     Route: 065
     Dates: start: 201201
  10. FISH OIL [Concomitant]
     Indication: ROUTINE HEALTH MAINTENANCE
     Dosage: UNK UNK, UNKNOWN
     Route: 065
     Dates: start: 201201
  11. BIOTIN [Concomitant]
     Indication: ROUTINE HEALTH MAINTENANCE
     Dosage: UNK UNK, UNKNOWN
     Route: 065
     Dates: start: 201201
  12. B-12 [Concomitant]
     Indication: ROUTINE HEALTH MAINTENANCE
     Dosage: UNK UNK, UNKNOWN
     Route: 065
     Dates: start: 201201
  13. LUTEIN                             /01638501/ [Concomitant]
     Indication: ROUTINE HEALTH MAINTENANCE
     Dosage: UNK UNK, UNKNOWN
     Route: 065
     Dates: start: 201201
  14. POTASSIUM [Concomitant]
     Indication: ROUTINE HEALTH MAINTENANCE
     Dosage: UNK UNK, UNKNOWN
     Route: 065
     Dates: start: 201201
  15. PROBIOTIC                          /06395501/ [Concomitant]
     Indication: ROUTINE HEALTH MAINTENANCE
     Dosage: UNK UNK, UNKNOWN
     Route: 065
     Dates: start: 201201

REACTIONS (2)
  - Face oedema [Recovered/Resolved]
  - Oedema peripheral [Recovered/Resolved]
